FAERS Safety Report 15832083 (Version 1)
Quarter: 2019Q1

REPORT INFORMATION
  Report Type: Spontaneous
  Country: US (occurrence: US)
  Receive Date: 20190116
  Receipt Date: 20190116
  Transmission Date: 20190417
  Serious: Yes (Other)
  Sender: FDA-Public Use
  Company Number: US-SA-2019SA007533

PATIENT
  Age: 52 Year
  Sex: Female

DRUGS (2)
  1. NOVOLOG [Concomitant]
     Active Substance: INSULIN ASPART
     Dosage: UNK
  2. LANTUS [Suspect]
     Active Substance: INSULIN GLARGINE
     Indication: TYPE 1 DIABETES MELLITUS
     Dosage: 10.5 U, QH
     Dates: start: 2001

REACTIONS (3)
  - Visual impairment [Unknown]
  - Dialysis [Unknown]
  - Blindness [Unknown]

NARRATIVE: CASE EVENT DATE: 201807
